FAERS Safety Report 10327227 (Version 1)
Quarter: 2014Q3

REPORT INFORMATION
  Report Type: Spontaneous
  Country: US (occurrence: US)
  Receive Date: 20140720
  Receipt Date: 20140720
  Transmission Date: 20150326
  Serious: No
  Sender: FDA-Public Use
  Company Number: US-009507513-1407USA007492

PATIENT
  Age: 47 Year
  Sex: Male

DRUGS (2)
  1. PROVENTIL [Suspect]
     Active Substance: ALBUTEROL
     Dosage: USED PROVENTIL FOR YEARS
     Route: 055
  2. PROVENTIL [Suspect]
     Active Substance: ALBUTEROL
     Dosage: 6.7 DF, PRN (AS NEEDED)
     Route: 055
     Dates: start: 20140712

REACTIONS (3)
  - Incorrect dose administered [Unknown]
  - Wheezing [Unknown]
  - Product quality issue [Unknown]

NARRATIVE: CASE EVENT DATE: 20140712
